FAERS Safety Report 9356312 (Version 1)
Quarter: 2013Q2

REPORT INFORMATION
  Report Type: Spontaneous
  Country: US (occurrence: US)
  Receive Date: 20130619
  Receipt Date: 20130619
  Transmission Date: 20140414
  Serious: Yes (Other)
  Sender: FDA-Public Use
  Company Number: US-ELI_LILLY_AND_COMPANY-US_981112738

PATIENT
  Age: 68 Year
  Sex: Male

DRUGS (4)
  1. VANCOMYCIN [Suspect]
     Dosage: UNK, UNKNOWN
  2. VERAPAMIL [Concomitant]
     Dosage: UNK, UNKNOWN
  3. ATENOLOL [Concomitant]
     Dosage: UNK, UNKNOWN
  4. FUROSEMIDE [Concomitant]
     Dosage: UNK, UNKNOWN

REACTIONS (1)
  - Linear IgA disease [Recovered/Resolved]
